FAERS Safety Report 8497791 (Version 4)
Quarter: 2013Q1

REPORT INFORMATION
  Report Type: Report from Study
  Country: ES (occurrence: ES)
  Receive Date: 20120406
  Receipt Date: 20130118
  Transmission Date: 20140127
  Serious: Yes (Death, Life-Threatening, Hospitalization, Disabling, Other)
  Sender: FDA-Public Use
  Company Number: ES-ABBOTT-12P-144-0921004-02

PATIENT
  Age: 49 Year
  Sex: Female
  Weight: 80 kg

DRUGS (7)
  1. HUMIRA [Suspect]
     Indication: UVEITIS
     Route: 058
     Dates: start: 20110509, end: 20110606
  2. PREDNISONE [Concomitant]
     Indication: UVEITIS
     Route: 048
     Dates: start: 2004
  3. IMUREL [Concomitant]
     Indication: PRODUCT USED FOR UNKNOWN INDICATION
     Route: 048
     Dates: start: 20081201
  4. OMEPRAZOL [Concomitant]
     Indication: PROPHYLAXIS
     Route: 048
     Dates: start: 20110118
  5. OMEPRAZOL [Concomitant]
     Indication: GASTRIC DISORDER
  6. COLCHICINE [Concomitant]
     Indication: PRODUCT USED FOR UNKNOWN INDICATION
     Route: 048
     Dates: start: 19970101
  7. DICYCLOMINE HYDROCHLORIDE [Concomitant]
     Indication: PRODUCT USED FOR UNKNOWN INDICATION
     Route: 048
     Dates: start: 19970101

REACTIONS (1)
  - High grade B-cell lymphoma Burkitt-like lymphoma [Fatal]
